FAERS Safety Report 14846449 (Version 1)
Quarter: 2018Q2

REPORT INFORMATION
  Report Type: Spontaneous
  Country: CM (occurrence: CM)
  Receive Date: 20180504
  Receipt Date: 20180504
  Transmission Date: 20180711
  Serious: Yes (Hospitalization, Other)
  Sender: FDA-Public Use
  Company Number: CM-LUPIN PHARMACEUTICALS INC.-2018-03392

PATIENT
  Age: 30 Year
  Sex: Female

DRUGS (1)
  1. MISOPROSTOL. [Suspect]
     Active Substance: MISOPROSTOL
     Indication: UTERINE ATONY
     Dosage: 600 MCG, UNK
     Route: 060

REACTIONS (2)
  - Hyperpyrexia [Recovering/Resolving]
  - Chills [Unknown]
